FAERS Safety Report 8254863 (Version 6)
Quarter: 2013Q1

REPORT INFORMATION
  Report Type: Report from Study
  Country: US (occurrence: US)
  Receive Date: 20111118
  Receipt Date: 20130108
  Transmission Date: 20140127
  Serious: Yes (Hospitalization)
  Sender: FDA-Public Use
  Company Number: US-ROCHE-1012862

PATIENT
  Age: 52 Year
  Sex: Female
  Weight: 132 kg

DRUGS (11)
  1. BLINDED TOCILIZUMAB [Suspect]
     Indication: RHEUMATOID ARTHRITIS
     Route: 058
     Dates: start: 20110808, end: 20111018
  2. TOCILIZUMAB [Suspect]
     Indication: RHEUMATOID ARTHRITIS
     Route: 058
     Dates: start: 20111031
  3. METHOTREXATE [Concomitant]
     Indication: RHEUMATOID ARTHRITIS
     Route: 048
     Dates: start: 20091019, end: 20120206
  4. FOLIC ACID [Concomitant]
     Indication: RHEUMATOID ARTHRITIS
     Route: 048
     Dates: start: 20100831
  5. ACETAMINOPHEN [Concomitant]
     Indication: RHEUMATOID ARTHRITIS
     Route: 048
     Dates: start: 20110331, end: 20120401
  6. ALBUTEROL [Concomitant]
     Route: 055
     Dates: start: 1999, end: 20120122
  7. QVAR [Concomitant]
     Route: 055
     Dates: start: 1999, end: 20120122
  8. ASPIRIN [Concomitant]
     Route: 048
     Dates: start: 20111113, end: 20111114
  9. PLAVIX [Concomitant]
     Route: 048
     Dates: start: 20111113, end: 20111113
  10. LOVENOX [Concomitant]
     Route: 058
     Dates: start: 20111113, end: 20111113
  11. NITROGLYCERIN [Concomitant]
     Route: 060
     Dates: start: 20111113, end: 20111114

REACTIONS (1)
  - Acute myocardial infarction [Recovered/Resolved]
